FAERS Safety Report 4710802-X (Version None)
Quarter: 2005Q3

REPORT INFORMATION
  Report Type: 
  Country: None (occurrence: None)
  Receive Date: 20050706
  Receipt Date: 20050614
  Transmission Date: 20060218
  Serious: Yes (Death, Other)
  Sender: FDA-Public Use
  Company Number: 2005BH000295

PATIENT
  Age: 79 Year
  Sex: Female

DRUGS (10)
  1. GAMMAGARD S/D [Suspect]
     Dosage: 10 ML
  2. DIAZEPAM [Concomitant]
  3. FILGRASTIM [Concomitant]
  4. DEXAMETHASONE [Concomitant]
  5. GLYBURIDE [Concomitant]
  6. OXAZEPAM [Concomitant]
  7. PANTOPRAZOLE [Concomitant]
  8. RAMIPRIL [Concomitant]
  9. PINDOLOL [Concomitant]
  10. METOCLOPRAMIDE [Concomitant]

REACTIONS (1)
  - ANAPHYLACTOID REACTION [None]
